FAERS Safety Report 7763304-0 (Version None)
Quarter: 2011Q3

REPORT INFORMATION
  Report Type: 
  Country: None (occurrence: None)
  Receive Date: 20110920
  Receipt Date: 20110406
  Transmission Date: 20111222
  Serious: No
  Sender: FDA-Public Use
  Company Number: US-BAYER-2011-030887

PATIENT
  Age: 86 Year
  Sex: Female
  Weight: 54 kg

DRUGS (4)
  1. ATENOLOL [Concomitant]
  2. ACETYLSALICYLIC ACID SRT [Concomitant]
  3. ALEVE (CAPLET) [Suspect]
     Indication: ANALGESIC THERAPY
     Dosage: 1 CAPLET ONCE DAILY - 50 COUNT
     Route: 048
     Dates: start: 20110405, end: 20110405
  4. FOLIC ACID [Concomitant]

REACTIONS (2)
  - DYSPEPSIA [None]
  - ODYNOPHAGIA [None]
